FAERS Safety Report 5877480-8 (Version None)
Quarter: 2008Q3

REPORT INFORMATION
  Report Type: 
  Country: None (occurrence: None)
  Receive Date: 20080909
  Receipt Date: 20080826
  Transmission Date: 20090109
  Serious: Yes (Life-Threatening, Hospitalization)
  Sender: FDA-Public Use
  Company Number: CAPT20080002

PATIENT
  Age: 37 Day
  Sex: Female
  Weight: 4 kg

DRUGS (5)
  1. CAPTOPRIL [Suspect]
     Dosage: 1.5 MG, Q8H, PER ORAL
     Route: 048
     Dates: start: 20080101
  2. LASIX [Suspect]
     Dosage: 3 MG, DAILY, PER ORAL
     Route: 048
     Dates: start: 20080101
  3. ZANTAC [Suspect]
     Dosage: 3 MG, BID, PER ORAL
     Route: 048
     Dates: start: 20080101
  4. ASPIRIN [Suspect]
     Dosage: UNKNOWN, DAILY, PER ORAL
     Route: 048
     Dates: start: 20080101
  5. PLAVIX [Suspect]
     Dates: start: 20080101

REACTIONS (19)
  - ASPIRATION [None]
  - BLOOD GLUCOSE INCREASED [None]
  - BLOOD PH DECREASED [None]
  - BLOOD POTASSIUM INCREASED [None]
  - BLOOD PRESSURE DECREASED [None]
  - BLOOD SODIUM DECREASED [None]
  - BODY TEMPERATURE DECREASED [None]
  - CARDIAC DISORDER [None]
  - CARDIAC MURMUR [None]
  - CARDIOMEGALY [None]
  - GASTROOESOPHAGEAL REFLUX DISEASE [None]
  - HAEMODYNAMIC INSTABILITY [None]
  - HEART RATE INCREASED [None]
  - HYPOTONIA [None]
  - INFECTION [None]
  - PCO2 INCREASED [None]
  - PO2 DECREASED [None]
  - RESPIRATORY ARREST [None]
  - WHITE BLOOD CELL COUNT INCREASED [None]
